FAERS Safety Report 6470394-4 (Version None)
Quarter: 2009Q4

REPORT INFORMATION
  Report Type: 
  Country: None (occurrence: None)
  Receive Date: 20091203
  Receipt Date: 20091124
  Transmission Date: 20100525
  Serious: Yes (Life-Threatening, Other)
  Sender: FDA-Public Use
  Company Number: JP-PFIZER INC-2009185970

PATIENT
  Age: 61 Year
  Sex: Female

DRUGS (4)
  1. CABASER [Suspect]
     Indication: PARKINSONISM
     Dosage: 3MG/DAY
     Route: 048
     Dates: start: 20050805, end: 20081219
  2. MENESIT [Concomitant]
     Route: 048
  3. LONGES [Concomitant]
     Indication: HYPERTENSION
     Dosage: UNK
     Route: 048
     Dates: start: 20051125
  4. ASPIRIN [Concomitant]
     Dosage: UNK
     Route: 048
     Dates: start: 20051125

REACTIONS (5)
  - AORTIC VALVE INCOMPETENCE [None]
  - CARDIAC VALVE DISEASE [None]
  - CARDIOMEGALY [None]
  - MITRAL VALVE INCOMPETENCE [None]
  - OEDEMA [None]
